FAERS Safety Report 6788329-3 (Version None)
Quarter: 2010Q2

REPORT INFORMATION
  Report Type: 
  Country: None (occurrence: None)
  Receive Date: 20100623
  Receipt Date: 20080407
  Transmission Date: 20101027
  Serious: No
  Sender: FDA-Public Use
  Company Number: US-PFIZER INC-2008011692

PATIENT
  Sex: Male
  Weight: 101.6 kg

DRUGS (1)
  1. SUTENT [Suspect]
     Indication: RENAL CELL CARCINOMA
     Route: 048
     Dates: start: 20080131

REACTIONS (4)
  - FATIGUE [None]
  - FEELING ABNORMAL [None]
  - ORAL PAIN [None]
  - PRODUCT QUALITY ISSUE [None]
